FAERS Safety Report 6123692-8 (Version None)
Quarter: 2009Q1

REPORT INFORMATION
  Report Type: 
  Country: None (occurrence: None)
  Receive Date: 20090317
  Receipt Date: 20090305
  Transmission Date: 20090719
  Serious: Yes (Hospitalization)
  Sender: FDA-Public Use
  Company Number: IPS_01468_2009

PATIENT
  Sex: Female

DRUGS (4)
  1. APO-GO (APO-GO - APOMORPHINE HYDROCHLORIDE) (NOT SPECIFIED) [Suspect]
     Indication: PARKINSON'S DISEASE
     Dosage: (90 MG PER DAY FOR 2 WEEKS 0 DAYS VIA PUMP SUBCUTANEOUS), 7 MG BOLUS INJECTION, SUBCUTANEOUS)
     Route: 058
     Dates: start: 20090120, end: 20090202
  2. APO-GO (APO-GO - APOMORPHINE HYDROCHLORIDE) (NOT SPECIFIED) [Suspect]
     Indication: PARKINSON'S DISEASE
     Dosage: (90 MG PER DAY FOR 2 WEEKS 0 DAYS VIA PUMP SUBCUTANEOUS), 7 MG BOLUS INJECTION, SUBCUTANEOUS)
     Route: 058
     Dates: start: 20090121, end: 20090202
  3. DOMPERIDONE [Concomitant]
  4. ROPINIROLE [Concomitant]

REACTIONS (10)
  - BLOOD CULTURE POSITIVE [None]
  - DRUG HYPERSENSITIVITY [None]
  - INFLAMMATION [None]
  - INJECTION SITE REACTION [None]
  - LABORATORY TEST INTERFERENCE [None]
  - MENINGITIS ASEPTIC [None]
  - MENINGITIS BACTERIAL [None]
  - MENINGITIS VIRAL [None]
  - STREPTOCOCCAL INFECTION [None]
  - WHITE BLOOD CELL COUNT DECREASED [None]
